FAERS Safety Report 19072992 (Version 1)
Quarter: 2021Q1

REPORT INFORMATION
  Report Type: Spontaneous
  Country: US (occurrence: US)
  Receive Date: 20210330
  Receipt Date: 20210330
  Transmission Date: 20210420
  Serious: Yes (Other)
  Sender: FDA-Public Use
  Company Number: None

PATIENT
  Age: 69 Year
  Sex: Female
  Weight: 77.4 kg

DRUGS (15)
  1. LOSARTAN. [Concomitant]
     Active Substance: LOSARTAN
  2. TURMERIC [Concomitant]
     Active Substance: HERBALS\TURMERIC
  3. GLUCOSAMINE CHONDROITIN [Concomitant]
     Active Substance: CHONDROITIN SULFATE (BOVINE)\GLUCOSAMINE HYDROCHLORIDE
  4. DOCUSTE SODIUM [Concomitant]
  5. XIIDRA [Suspect]
     Active Substance: LIFITEGRAST
     Indication: EYE DISORDER
     Dosage: ?          QUANTITY:0.2 CAPSULE(S);?
     Route: 047
     Dates: start: 20210328, end: 20210330
  6. MONDAFINIL [Concomitant]
     Active Substance: MODAFINIL
  7. SUMTHROID [Concomitant]
  8. SKELAXIN [Concomitant]
     Active Substance: METAXALONE
  9. BAGIFEM [Concomitant]
  10. B?50 [Concomitant]
  11. VITAMIN D [Concomitant]
     Active Substance: VITAMIN D NOS
  12. MAGNESIUM GLYCINATE [Concomitant]
     Active Substance: MAGNESIUM GLYCINATE
  13. NEXIUM [Concomitant]
     Active Substance: ESOMEPRAZOLE MAGNESIUM
  14. CYMBALTA [Concomitant]
     Active Substance: DULOXETINE HYDROCHLORIDE
  15. CPAP [Concomitant]
     Active Substance: DEVICE

REACTIONS (4)
  - Product substitution issue [None]
  - Increased viscosity of upper respiratory secretion [None]
  - Dysgeusia [None]
  - Product packaging difficult to open [None]

NARRATIVE: CASE EVENT DATE: 20210328
